FAERS Safety Report 23089376 (Version 1)
Quarter: 2023Q4

REPORT INFORMATION
  Report Type: Spontaneous
  Country: US (occurrence: US)
  Receive Date: 20231020
  Receipt Date: 20231020
  Transmission Date: 20240110
  Serious: No
  Sender: FDA-Public Use
  Company Number: US-ABBVIE-5456867

PATIENT
  Age: 33 Year
  Sex: Female

DRUGS (2)
  1. VRAYLAR [Suspect]
     Active Substance: CARIPRAZINE
     Indication: Depression
     Route: 048
     Dates: start: 202308, end: 20231016
  2. HYDROCHLOROTHIAZIDE [Suspect]
     Active Substance: HYDROCHLOROTHIAZIDE
     Indication: Oedema
     Route: 065

REACTIONS (5)
  - Weight increased [Unknown]
  - Hunger [Unknown]
  - Oedema peripheral [Unknown]
  - Dehydration [Unknown]
  - Dyspnoea [Unknown]
